FAERS Safety Report 12413582 (Version 2)
Quarter: 2016Q2

REPORT INFORMATION
  Report Type: Spontaneous
  Country: US (occurrence: US)
  Receive Date: 20160527
  Receipt Date: 20160606
  Transmission Date: 20160815
  Serious: No
  Sender: FDA-Public Use
  Company Number: US-AMGEN-USASP2016036197

PATIENT

DRUGS (2)
  1. BLINCYTO [Suspect]
     Active Substance: BLINATUMOMAB
     Indication: ACUTE LYMPHOCYTIC LEUKAEMIA
     Dosage: 9 MUG, UNK
     Route: 065
     Dates: start: 20160317
  2. HYDREA [Concomitant]
     Active Substance: HYDROXYUREA
     Dosage: 2000 MG, UNK
     Route: 048
     Dates: start: 20160319

REACTIONS (1)
  - Paraesthesia [Unknown]
